FAERS Safety Report 16145730 (Version 1)
Quarter: 2019Q2

REPORT INFORMATION
  Report Type: Spontaneous
  Country: US (occurrence: US)
  Receive Date: 20190401
  Receipt Date: 20190401
  Transmission Date: 20190711
  Serious: No
  Sender: FDA-Public Use
  Company Number: None

PATIENT
  Age: 30 Year
  Sex: Female
  Weight: 62.1 kg

DRUGS (8)
  1. VIT D [Concomitant]
     Active Substance: VITAMIN D NOS
  2. PROBIOTICS [Concomitant]
     Active Substance: PROBIOTICS NOS
  3. CLARITIN [Concomitant]
     Active Substance: LORATADINE
  4. CALCIUM [Concomitant]
     Active Substance: CALCIUM
  5. KETOROLAC [Suspect]
     Active Substance: KETOROLAC\KETOROLAC TROMETHAMINE
     Indication: HYPERSENSITIVITY
  6. BIOTIN [Concomitant]
     Active Substance: BIOTIN
  7. LEVOTHYROXINE. [Concomitant]
     Active Substance: LEVOTHYROXINE
  8. MULTIVITAMIN [Concomitant]
     Active Substance: VITAMINS

REACTIONS (3)
  - Product prescribing error [None]
  - Injection site atrophy [None]
  - Injection site pain [None]

NARRATIVE: CASE EVENT DATE: 20190331
